FAERS Safety Report 12553612 (Version 1)
Quarter: 2016Q3

REPORT INFORMATION
  Report Type: Spontaneous
  Country: FR (occurrence: FR)
  Receive Date: 20160713
  Receipt Date: 20160713
  Transmission Date: 20161109
  Serious: Yes (Death, Other)
  Sender: FDA-Public Use
  Company Number: FR-GILEAD-2016-0222799

PATIENT
  Age: 46 Year
  Sex: Female

DRUGS (10)
  1. NORVIR [Suspect]
     Active Substance: RITONAVIR
     Indication: ACQUIRED IMMUNODEFICIENCY SYNDROME
     Dosage: 200 MG, BID
     Route: 048
     Dates: start: 20160314, end: 20160323
  2. TERCIAN                            /00759301/ [Suspect]
     Active Substance: CYAMEMAZINE
     Indication: DEPRESSION
     Dosage: UNK
     Route: 048
     Dates: end: 20160323
  3. TRUVADA [Suspect]
     Active Substance: EMTRICITABINE\TENOFOVIR DISOPROXIL FUMARATE
     Indication: ACQUIRED IMMUNODEFICIENCY SYNDROME
     Dosage: 1 DF, QD
     Route: 048
     Dates: start: 20160314, end: 20160323
  4. TIVICAY [Suspect]
     Active Substance: DOLUTEGRAVIR SODIUM
     Indication: ACQUIRED IMMUNODEFICIENCY SYNDROME
     Dosage: 100 MG, QD
     Route: 048
     Dates: start: 20160314, end: 20160323
  5. LAROXYL [Suspect]
     Active Substance: AMITRIPTYLINE
     Indication: DEPRESSION
     Dosage: 50 MG, BID
     Route: 048
     Dates: start: 201511, end: 20160323
  6. APTIVUS [Suspect]
     Active Substance: TIPRANAVIR
     Indication: ACQUIRED IMMUNODEFICIENCY SYNDROME
     Dosage: 250 MG, UNK
     Route: 048
     Dates: start: 2013, end: 20160323
  7. EFFEXOR [Suspect]
     Active Substance: VENLAFAXINE HYDROCHLORIDE
     Indication: DEPRESSION
     Dosage: 75 MG, BID
     Route: 048
     Dates: start: 201504, end: 20160323
  8. THERALENE [Suspect]
     Active Substance: TRIMEPRAZINE
     Indication: DEPRESSION
     Dosage: 5 MG, UNK
     Route: 048
     Dates: end: 20160323
  9. LYSANXIA [Concomitant]
     Active Substance: PRAZEPAM
     Indication: DEPRESSION
     Route: 065
  10. IMOVANE [Suspect]
     Active Substance: ZOPICLONE
     Indication: INSOMNIA
     Dosage: 7.5 MG, QD
     Route: 048
     Dates: start: 201504, end: 20160323

REACTIONS (2)
  - Completed suicide [Fatal]
  - Depression [Fatal]

NARRATIVE: CASE EVENT DATE: 201603
